FAERS Safety Report 16948104 (Version 1)
Quarter: 2019Q4

REPORT INFORMATION
  Report Type: Spontaneous
  Country: JP (occurrence: JP)
  Receive Date: 20191022
  Receipt Date: 20191022
  Transmission Date: 20200122
  Serious: Yes (Hospitalization)
  Sender: FDA-Public Use
  Company Number: JP-CELGENEUS-JPN-20190209187

PATIENT
  Age: 81 Year
  Sex: Male
  Weight: 49.5 kg

DRUGS (17)
  1. DIPHENHYDRAMINE. [Concomitant]
     Active Substance: DIPHENHYDRAMINE
     Indication: RASH
     Dosage: 1 PERCENT
     Route: 061
     Dates: start: 20190104
  2. LYRICA [Concomitant]
     Active Substance: PREGABALIN
     Indication: SCIATICA
     Dosage: 75 MILLIGRAM
     Route: 048
     Dates: start: 20190123
  3. PLATELETS [Concomitant]
     Active Substance: HUMAN PLATELET, ALLOGENIC
     Indication: PRODUCT USED FOR UNKNOWN INDICATION
     Dosage: 200 MILLILITER
     Route: 042
     Dates: start: 20181112
  4. CLOSTRIDIUM BUTYRICUM [Concomitant]
     Active Substance: CLOSTRIDIUM BUTYRICUM SPORES STRAIN M-55
     Indication: INFECTION PROPHYLAXIS
     Dosage: 3 TABLET
     Route: 048
     Dates: start: 20181113
  5. LIDOCAINE. [Concomitant]
     Active Substance: LIDOCAINE
     Indication: STOMATITIS
     Dosage: 4 PERCENT
     Route: 065
     Dates: start: 20190125
  6. HYDROCORTISONE BUTYRATE. [Concomitant]
     Active Substance: HYDROCORTISONE BUTYRATE
     Indication: DRY SKIN
     Dosage: .2 PERCENT
     Route: 061
     Dates: start: 20190104
  7. SODIUM GUALENATE [Concomitant]
     Active Substance: SODIUM GUALENATE
     Indication: STOMATITIS
     Route: 065
     Dates: start: 20190125
  8. MAGNESIUM OXIDE. [Concomitant]
     Active Substance: MAGNESIUM OXIDE
     Indication: CONSTIPATION
     Dosage: 990 MILLIGRAM
     Route: 048
     Dates: start: 20181113
  9. VONOPRAZAN FUMARATE [Concomitant]
     Active Substance: VONOPRAZAN FUMURATE
     Indication: CHRONIC GASTRITIS
     Dosage: 20 MILLIGRAM
     Route: 048
     Dates: start: 20181117
  10. MS ONSHIPPU [Concomitant]
     Active Substance: CAMPHOR\CAPSICUM\METHYL SALICYLATE
     Indication: SCIATICA
     Dosage: 20 MILLIGRAM
     Route: 061
     Dates: start: 20190104
  11. PRBC [Concomitant]
     Active Substance: HUMAN RED BLOOD CELL
     Dosage: 400 MILLILITER
     Route: 042
     Dates: start: 20181115
  12. PLATELETS [Concomitant]
     Active Substance: HUMAN PLATELET, ALLOGENIC
     Dosage: 200 MILLILITER
     Route: 042
     Dates: start: 20181119
  13. BLINDED VENETOCLAX [Concomitant]
     Active Substance: VENETOCLAX
     Indication: ACUTE MYELOID LEUKAEMIA
     Route: 065
  14. FLUCONAZOLE. [Concomitant]
     Active Substance: FLUCONAZOLE
     Indication: INFECTION PROPHYLAXIS
     Dosage: 100 MILLIGRAM
     Route: 048
     Dates: start: 20190111
  15. PRBC [Concomitant]
     Active Substance: HUMAN RED BLOOD CELL
     Indication: PRODUCT USED FOR UNKNOWN INDICATION
     Dosage: 400 MILLILITER
     Route: 042
     Dates: start: 20181113
  16. VIDAZA [Suspect]
     Active Substance: AZACITIDINE
     Indication: ACUTE MYELOID LEUKAEMIA
     Dosage: 75 MILLIGRAM/SQ. METER
     Route: 058
     Dates: start: 20181126
  17. HIRUDOID [Concomitant]
     Active Substance: GLYCOSAMINOGLYCANS
     Indication: DRY SKIN
     Route: 061
     Dates: start: 20181114

REACTIONS (1)
  - Influenza [Recovered/Resolved]

NARRATIVE: CASE EVENT DATE: 20190219
